FAERS Safety Report 13594206 (Version 4)
Quarter: 2017Q4

REPORT INFORMATION
  Report Type: Spontaneous
  Country: US (occurrence: US)
  Receive Date: 20170530
  Receipt Date: 20171222
  Transmission Date: 20180320
  Serious: No
  Sender: FDA-Public Use
  Company Number: US-PFIZER INC-2017236687

PATIENT
  Age: 67 Year
  Sex: Female
  Weight: 68.48 kg

DRUGS (1)
  1. IBRANCE [Suspect]
     Active Substance: PALBOCICLIB
     Indication: BREAST CANCER
     Dosage: 125 MG, CYCLIC(D1-D21 Q28 D)
     Route: 048
     Dates: start: 20170512

REACTIONS (6)
  - Oral pain [Not Recovered/Not Resolved]
  - Full blood count decreased [Unknown]
  - Stomatitis [Not Recovered/Not Resolved]
  - Alopecia [Unknown]
  - Oral discomfort [Unknown]
  - Mouth ulceration [Unknown]
